FAERS Safety Report 5009011-9 (Version None)
Quarter: 2006Q2

REPORT INFORMATION
  Report Type: 
  Country: None (occurrence: None)
  Receive Date: 20060519
  Receipt Date: 20060509
  Transmission Date: 20061013
  Serious: Yes (Hospitalization, Other)
  Sender: FDA-Public Use
  Company Number: 2006AL001168

PATIENT
  Age: 48 Year
  Sex: Male

DRUGS (9)
  1. DILTIAZEM HYDROCHLORIDE [Suspect]
     Dosage: 240 MG; QD
  2. PROPOXYPHENE NAPSYLATE [Concomitant]
  3. ACETAMINOPHEN [Concomitant]
  4. ATORVASTATIN CALCIUM [Concomitant]
  5. LEVOTHYROXINE SODIUM [Concomitant]
  6. FOSINOPRIL SODIUM [Concomitant]
  7. AMITRIPTYLINE HCL [Concomitant]
  8. WARFARIN [Concomitant]
  9. METOPROLOL [Concomitant]

REACTIONS (4)
  - BRADYCARDIA [None]
  - DIZZINESS [None]
  - DRUG INTERACTION [None]
  - HYPERHIDROSIS [None]
